FAERS Safety Report 5867255-8 (Version None)
Quarter: 2008Q3

REPORT INFORMATION
  Report Type: 
  Country: None (occurrence: None)
  Receive Date: 20080829
  Receipt Date: 20080829
  Transmission Date: 20090109
  Serious: Yes (Hospitalization)
  Sender: FDA-Public Use
  Company Number: None

PATIENT
  Sex: Male
  Weight: 132.2 kg

DRUGS (5)
  1. INTRON A [Suspect]
     Dosage: 1020 MILLION IU
     Route: 015
  2. LISINOPRIL [Concomitant]
  3. RANITIDINE [Concomitant]
  4. ACETAMINOPHEN [Concomitant]
  5. FAMOTIDINE [Concomitant]

REACTIONS (1)
  - BLOOD LACTATE DEHYDROGENASE INCREASED [None]
